FAERS Safety Report 17355012 (Version 7)
Quarter: 2022Q2

REPORT INFORMATION
  Report Type: Report from Study
  Country: CA (occurrence: CA)
  Receive Date: 20200131
  Receipt Date: 20220621
  Transmission Date: 20220721
  Serious: Yes (Hospitalization, Other)
  Sender: FDA-Public Use
  Company Number: NVSC2020CA023688

PATIENT
  Sex: Female

DRUGS (1)
  1. COSENTYX [Suspect]
     Active Substance: SECUKINUMAB
     Indication: Psoriasis
     Dosage: 300 MG, QMO
     Route: 058
     Dates: start: 20191203

REACTIONS (15)
  - Necrotising soft tissue infection [Unknown]
  - Cellulitis [Unknown]
  - Furuncle [Unknown]
  - Wound [Unknown]
  - Wound infection [Unknown]
  - Renal impairment [Unknown]
  - Groin infection [Unknown]
  - Thrombosis [Unknown]
  - Gait inability [Unknown]
  - Psoriasis [Unknown]
  - Skin haemorrhage [Unknown]
  - Cellulitis [Recovered/Resolved]
  - Arthralgia [Recovered/Resolved]
  - Musculoskeletal stiffness [Recovered/Resolved]
  - Nausea [Not Recovered/Not Resolved]

NARRATIVE: CASE EVENT DATE: 20210101
